FAERS Safety Report 7423378-3 (Version None)
Quarter: 2011Q2

REPORT INFORMATION
  Report Type: 
  Country: None (occurrence: None)
  Receive Date: 20110419
  Receipt Date: 20110406
  Transmission Date: 20111010
  Serious: Yes (Hospitalization)
  Sender: FDA-Public Use
  Company Number: PHHY2011US28588

PATIENT
  Sex: Male
  Weight: 69 kg

DRUGS (2)
  1. EXJADE [Suspect]
     Indication: MYELODYSPLASTIC SYNDROME
     Dosage: 750 MG, DAILY
     Route: 048
     Dates: start: 20101127
  2. BOTOX [Concomitant]

REACTIONS (4)
  - DYSPNOEA [None]
  - CARDIAC FAILURE [None]
  - OEDEMA PERIPHERAL [None]
  - COUGH [None]
